FAERS Safety Report 17717445 (Version 1)
Quarter: 2020Q2

REPORT INFORMATION
  Report Type: Spontaneous
  Country: US (occurrence: US)
  Receive Date: 20200427
  Receipt Date: 20200427
  Transmission Date: 20200714
  Serious: Yes (Hospitalization)
  Sender: FDA-Public Use
  Company Number: None

PATIENT
  Age: 43 Year
  Sex: Female

DRUGS (6)
  1. FOLIC ACID. [Concomitant]
     Active Substance: FOLIC ACID
  2. METHOTREXATE. [Concomitant]
     Active Substance: METHOTREXATE
  3. AMITRYPTILIN [Concomitant]
  4. SAVELLA [Concomitant]
     Active Substance: MILNACIPRAN HYDROCHLORIDE
  5. ORENCIA [Suspect]
     Active Substance: ABATACEPT
     Indication: RHEUMATOID ARTHRITIS
     Route: 058
     Dates: start: 20190910
  6. CYMBALTAS [Concomitant]

REACTIONS (1)
  - Pneumonia [None]

NARRATIVE: CASE EVENT DATE: 20200416
